FAERS Safety Report 4620181-4 (Version None)
Quarter: 2005Q1

REPORT INFORMATION
  Report Type: 
  Country: None (occurrence: None)
  Receive Date: 20050324
  Receipt Date: 20050303
  Transmission Date: 20050727
  Serious: Yes (Hospitalization)
  Sender: FDA-Public Use
  Company Number: AU_050308428

PATIENT
  Sex: Female

DRUGS (3)
  1. GEMZAR [Suspect]
     Indication: SMALL INTESTINE CARCINOMA
     Dates: start: 20050201
  2. RADIATION THERAPY [Concomitant]
  3. PAIN MEDICATION [Concomitant]

REACTIONS (1)
  - GASTROINTESTINAL TOXICITY [None]
